FAERS Safety Report 10015391 (Version 2)
Quarter: 2014Q2

REPORT INFORMATION
  Report Type: Spontaneous
  Country: US (occurrence: US)
  Receive Date: 20140317
  Receipt Date: 20140526
  Transmission Date: 20141212
  Serious: Yes (Death, Other)
  Sender: FDA-Public Use
  Company Number: US-AMGEN-USASP2014017576

PATIENT
  Age: 82 Year
  Sex: Male
  Weight: 67.57 kg

DRUGS (1)
  1. XGEVA [Suspect]
     Indication: METASTASES TO BONE
     Dosage: 120 MG, Q4WK
     Route: 058
     Dates: start: 20120611, end: 20140122

REACTIONS (2)
  - Prostate cancer metastatic [Fatal]
  - Myelodysplastic syndrome [Unknown]
